FAERS Safety Report 17922070 (Version 1)
Quarter: 2020Q2

REPORT INFORMATION
  Report Type: Spontaneous
  Country: US (occurrence: US)
  Receive Date: 20200622
  Receipt Date: 20200622
  Transmission Date: 20200714
  Serious: No
  Sender: FDA-Public Use
  Company Number: US-GLAXOSMITHKLINE-US2020104641

PATIENT
  Sex: Male

DRUGS (1)
  1. ROPINIROLE. [Suspect]
     Active Substance: ROPINIROLE
     Indication: MYOCLONUS
     Dosage: UNK
     Route: 065

REACTIONS (4)
  - Myoclonus [Unknown]
  - Limb deformity [Unknown]
  - Drug ineffective [Unknown]
  - Foot deformity [Unknown]
